FAERS Safety Report 6022372-7 (Version None)
Quarter: 2008Q4

REPORT INFORMATION
  Report Type: 
  Country: None (occurrence: None)
  Receive Date: 20081223
  Receipt Date: 20081216
  Transmission Date: 20090506
  Serious: Yes (Disabling, Other)
  Sender: FDA-Public Use
  Company Number: 100#03#2008-06298

PATIENT
  Age: 62 Year
  Sex: Male

DRUGS (3)
  1. CIPROFLOXACIN [Suspect]
     Indication: PROSTATITIS
     Dosage: 250 MG TWICE DAILY
     Route: 048
     Dates: start: 20080920, end: 20080922
  2. CIPROFLOXACIN [Suspect]
     Indication: URINARY TRACT INFECTION
     Dosage: 250 MG TWICE DAILY
     Route: 048
     Dates: start: 20080920, end: 20080922
  3. SAW PALMETTO (SERENOA REPENS, SERENOA SERRULATA) [Concomitant]

REACTIONS (4)
  - ARTHRALGIA [None]
  - DYSGEUSIA [None]
  - HEADACHE [None]
  - PRURITUS [None]
